FAERS Safety Report 25994632 (Version 2)
Quarter: 2025Q4

REPORT INFORMATION
  Report Type: Spontaneous
  Country: US (occurrence: US)
  Receive Date: 20251104
  Receipt Date: 20251104
  Transmission Date: 20260118
  Serious: Yes (Hospitalization)
  Sender: CSL BEHRING
  Company Number: US-BEH-2025223862

PATIENT
  Age: 34 Year
  Sex: Male
  Weight: 85 kg

DRUGS (2)
  1. MIRCERA [Suspect]
     Active Substance: METHOXY POLYETHYLENE GLYCOL-EPOETIN BETA
     Indication: Anaemia of chronic disease
     Dosage: 150 ?G, EVERY 2 WEEKS
     Route: 040
     Dates: start: 20251022, end: 20251022
  2. VENOFER [Suspect]
     Active Substance: IRON SUCROSE
     Dosage: 100 MG
     Route: 040
     Dates: start: 20251022

REACTIONS (5)
  - Dyspnoea [Unknown]
  - Throat tightness [Unknown]
  - Flushing [Unknown]
  - Flushing [Unknown]
  - Drug hypersensitivity [Unknown]

NARRATIVE: CASE EVENT DATE: 20251022
